FAERS Safety Report 5092264-9 (Version None)
Quarter: 2006Q3

REPORT INFORMATION
  Report Type: 
  Country: None (occurrence: None)
  Receive Date: 20060828
  Receipt Date: 20060828
  Transmission Date: 20061208
  Serious: Yes (Other)
  Sender: FDA-Public Use
  Company Number: None

PATIENT
  Age: 27 Year
  Sex: Female
  Weight: 61.2356 kg

DRUGS (2)
  1. ACCUTANE [Suspect]
     Indication: ACNE
     Dosage: 20 MG EACH MORNING PO
     Route: 048
     Dates: start: 20010301, end: 20010630
  2. ACCUTANE [Suspect]
     Indication: ACNE
     Dosage: 10 MG EACH NIGHT PO
     Route: 047
     Dates: start: 20010301, end: 20010630

REACTIONS (1)
  - IMPLANT SITE REACTION [None]
